FAERS Safety Report 9332718 (Version 2)
Quarter: 2013Q2

REPORT INFORMATION
  Report Type: Spontaneous
  Country: GB (occurrence: None)
  Receive Date: 20130603
  Receipt Date: 20130613
  Transmission Date: 20140414
  Serious: Yes (Other)
  Sender: FDA-Public Use
  Company Number: AUR-APL-2013-04269

PATIENT
  Age: 30 Year
  Sex: Male
  Weight: 87 kg

DRUGS (3)
  1. CITALOPRAM (CITALOPRAM) [Suspect]
     Indication: DEPRESSION
     Route: 048
     Dates: start: 20031112, end: 20101112
  2. ESCITALOPRAM (ESCITALOPRAM) [Suspect]
     Indication: DEPRESSION
     Route: 048
     Dates: start: 20101112, end: 20130112
  3. VENTOLIN (SALBUTAMOL) [Concomitant]

REACTIONS (6)
  - Confusional state [None]
  - Loss of libido [None]
  - Alcohol abuse [None]
  - Drug abuse [None]
  - Sweat gland disorder [None]
  - Partner stress [None]
